FAERS Safety Report 11685494 (Version 18)
Quarter: 2020Q1

REPORT INFORMATION
  Report Type: Spontaneous
  Country: US (occurrence: US)
  Receive Date: 20151030
  Receipt Date: 20200313
  Transmission Date: 20200409
  Serious: Yes (Congenital Anomaly, Other)
  Sender: FDA-Public Use
  Company Number: PHEH2015US021856

PATIENT
  Age: 0 Day
  Sex: Male

DRUGS (3)
  1. ZOFRAN [Suspect]
     Active Substance: ONDANSETRON HYDROCHLORIDE
     Indication: FOETAL EXPOSURE DURING PREGNANCY
     Route: 064
  2. ONDANSETRON HYDROCHLORIDE. [Suspect]
     Active Substance: ONDANSETRON HYDROCHLORIDE
     Indication: FOETAL EXPOSURE DURING PREGNANCY
     Route: 064
  3. ONDANSETRON DR REDDY [Suspect]
     Active Substance: ONDANSETRON
     Indication: FOETAL EXPOSURE DURING PREGNANCY
     Dosage: MOTHER DOSE: 4 MG, UNK
     Route: 064

REACTIONS (58)
  - Heart disease congenital [Unknown]
  - Endocarditis bacterial [Unknown]
  - Near drowning [Unknown]
  - Wheezing [Unknown]
  - Upper respiratory tract infection [Unknown]
  - Rhinitis allergic [Unknown]
  - Premature baby [Unknown]
  - Croup infectious [Unknown]
  - Pneumonia viral [Unknown]
  - Pharyngitis [Unknown]
  - Rhinorrhoea [Unknown]
  - Cough [Unknown]
  - Asthma [Unknown]
  - Vomiting [Unknown]
  - Abdominal pain [Unknown]
  - Hiccups [Unknown]
  - Gastrooesophageal reflux disease [Unknown]
  - Dyspnoea [Unknown]
  - Gingival bleeding [Unknown]
  - Nasal congestion [Unknown]
  - Decreased appetite [Unknown]
  - Tonsillitis [Unknown]
  - Eye pain [Unknown]
  - Influenza [Unknown]
  - Tricuspid valve incompetence [Unknown]
  - Anxiety [Unknown]
  - Speech disorder [Unknown]
  - Headache [Unknown]
  - Stridor [Unknown]
  - Dermatitis diaper [Unknown]
  - Attention deficit/hyperactivity disorder [Unknown]
  - Foetal exposure during pregnancy [Unknown]
  - Developmental delay [Unknown]
  - Polydipsia [Unknown]
  - Cardiac murmur [Unknown]
  - Pyrexia [Unknown]
  - Oral candidiasis [Unknown]
  - Congenital anomaly [Unknown]
  - Atrial septal defect [Unknown]
  - Seizure [Unknown]
  - Mouth ulceration [Unknown]
  - Dermatitis contact [Unknown]
  - Sneezing [Unknown]
  - Constipation [Unknown]
  - Ventricular septal defect [Unknown]
  - Conjunctivitis bacterial [Unknown]
  - Bronchiolitis [Unknown]
  - Injury [Unknown]
  - Ear infection [Unknown]
  - Dental caries [Unknown]
  - Umbilical hernia [Unknown]
  - Multiple congenital abnormalities [Unknown]
  - Pain [Unknown]
  - Anhedonia [Unknown]
  - Bronchitis [Unknown]
  - Rash [Unknown]
  - Gastroenteritis [Unknown]
  - Swelling [Unknown]

NARRATIVE: CASE EVENT DATE: 20140811
